FAERS Safety Report 6898247-8 (Version None)
Quarter: 2010Q3

REPORT INFORMATION
  Report Type: 
  Country: None (occurrence: None)
  Receive Date: 20100802
  Receipt Date: 20070926
  Transmission Date: 20110219
  Serious: No
  Sender: FDA-Public Use
  Company Number: US-PFIZER INC-2007081418

PATIENT
  Sex: Female
  Weight: 68.181 kg

DRUGS (3)
  1. LYRICA [Suspect]
     Indication: MULTIPLE SCLEROSIS
     Route: 048
     Dates: start: 20070921
  2. BACLOFEN [Concomitant]
  3. ZANTAC [Concomitant]

REACTIONS (3)
  - HEADACHE [None]
  - SOMNOLENCE [None]
  - VISION BLURRED [None]
